FAERS Safety Report 8170296-1 (Version None)
Quarter: 2012Q1

REPORT INFORMATION
  Report Type: 
  Country: None (occurrence: None)
  Receive Date: 20120228
  Receipt Date: 20120216
  Transmission Date: 20120608
  Serious: Yes (Hospitalization, Other)
  Sender: FDA-Public Use
  Company Number: US-BAYER-2011-039233

PATIENT
  Age: 23 Year
  Sex: Female
  Weight: 79.365 kg

DRUGS (2)
  1. YASMIN [Suspect]
     Indication: CONTRACEPTION
     Dosage: UNK
     Route: 048
     Dates: start: 20060807, end: 20070124
  2. YAZ [Suspect]

REACTIONS (14)
  - ANXIETY [None]
  - EMOTIONAL DISTRESS [None]
  - FEAR [None]
  - PAIN [None]
  - NAUSEA [None]
  - DIPLOPIA [None]
  - VOMITING [None]
  - HEMIPARESIS [None]
  - ILLUSION [None]
  - DEPRESSION [None]
  - HEADACHE [None]
  - INTRACRANIAL VENOUS SINUS THROMBOSIS [None]
  - GENERAL PHYSICAL HEALTH DETERIORATION [None]
  - OPHTHALMOPLEGIA [None]
